FAERS Safety Report 7640083-9 (Version None)
Quarter: 2011Q3

REPORT INFORMATION
  Report Type: 
  Country: None (occurrence: None)
  Receive Date: 20110727
  Receipt Date: 20110714
  Transmission Date: 20111222
  Serious: Yes (Hospitalization, Other)
  Sender: FDA-Public Use
  Company Number: US-ELI_LILLY_AND_COMPANY-US201107002751

PATIENT
  Age: 62 Year
  Sex: Female
  Weight: 47.619 kg

DRUGS (8)
  1. FORTEO [Suspect]
     Dosage: 20 UG, QD
     Route: 065
  2. ZOFRAN [Concomitant]
  3. RANITIDINE [Concomitant]
  4. ANALGESICS [Concomitant]
  5. PEPCID [Concomitant]
  6. FORTEO [Suspect]
     Dosage: 20 UG, QD
     Route: 065
     Dates: end: 20110601
  7. FORTEO [Suspect]
     Indication: OSTEOPOROSIS
     Dosage: 20 UG, QD
     Route: 065
  8. POTASSIUM [Concomitant]

REACTIONS (16)
  - DUODENITIS [None]
  - URINARY TRACT INFECTION [None]
  - GASTROINTESTINAL INFLAMMATION [None]
  - ASTHENIA [None]
  - WEIGHT DECREASED [None]
  - DIARRHOEA [None]
  - VOMITING [None]
  - DUODENAL ULCER [None]
  - MALAISE [None]
  - NAUSEA [None]
  - BLOOD POTASSIUM DECREASED [None]
  - HYPERSENSITIVITY [None]
  - GASTROINTESTINAL PAIN [None]
  - ULCER [None]
  - LOSS OF CONSCIOUSNESS [None]
  - INTESTINAL ULCER [None]
